FAERS Safety Report 8601143-9 (Version None)
Quarter: 2012Q3

REPORT INFORMATION
  Report Type: 
  Country: None (occurrence: None)
  Receive Date: 20120817
  Receipt Date: 20120813
  Transmission Date: 20120928
  Serious: Yes (Other)
  Sender: FDA-Public Use
  Company Number: PHHY2012CA070369

PATIENT
  Sex: Female

DRUGS (1)
  1. SANDOSTATIN LAR [Suspect]
     Indication: PANCREATIC CARCINOMA
     Dosage: 30 MG, ONCE A MONTH
     Route: 030
     Dates: start: 20120522

REACTIONS (6)
  - DISORIENTATION [None]
  - MEMORY IMPAIRMENT [None]
  - PAIN [None]
  - FLATULENCE [None]
  - ABNORMAL FAECES [None]
  - CONSTIPATION [None]
